FAERS Safety Report 12830791 (Version 2)
Quarter: 2016Q4

REPORT INFORMATION
  Report Type: Report from Study
  Country: TR (occurrence: TR)
  Receive Date: 20161007
  Receipt Date: 20161226
  Transmission Date: 20170207
  Serious: Yes (Hospitalization)
  Sender: FDA-Public Use
  Company Number: TR-B.I. PHARMACEUTICALS,INC./RIDGEFIELD-2016-BI-62199BI

PATIENT
  Age: 71 Year
  Sex: Male
  Weight: 79.5 kg

DRUGS (10)
  1. DILTIZEM [Concomitant]
     Indication: HYPERTENSION
     Dosage: DAILY DOSE: 2 X 1
     Route: 048
     Dates: start: 2009
  2. MIFLONIDE [Concomitant]
     Active Substance: BUDESONIDE
     Indication: CHRONIC OBSTRUCTIVE PULMONARY DISEASE
     Dosage: DAILY DOSE: 2 X 1
     Route: 055
     Dates: start: 20151027
  3. CO-DIOVAN [Concomitant]
     Active Substance: HYDROCHLOROTHIAZIDE\VALSARTAN
     Indication: HYPERTENSION
     Dosage: DAILY DOSE: 1 X 1
     Route: 048
     Dates: start: 2009
  4. CORASPIRIN [Concomitant]
     Indication: ARTERIOSCLEROSIS CORONARY ARTERY
     Dosage: DAILY DOSE: 1 X 1
     Route: 048
     Dates: start: 2009
  5. LANTUS [Concomitant]
     Active Substance: INSULIN GLARGINE
     Indication: DIABETES MELLITUS
     Dosage: DAILY DOSE: 1 X 1
     Route: 058
     Dates: start: 2008
  6. LASIX [Concomitant]
     Active Substance: FUROSEMIDE
     Indication: HYPERTENSION
     Dosage: DAILY DOSE: 1 X 1
     Route: 048
     Dates: start: 2009
  7. GLIFOR [Concomitant]
     Active Substance: METFORMIN HYDROCHLORIDE
     Indication: DIABETES MELLITUS
     Dosage: DAILY DOSE: 2 X 1
     Route: 048
     Dates: start: 2008
  8. CITROL [Concomitant]
     Active Substance: CITALOPRAM HYDROBROMIDE
     Indication: ANXIETY
     Dosage: DAILY DOSE: 1 X 1
     Route: 048
  9. BLINDED TIOTROPIUM BROMIDE+OLODATEROL [Suspect]
     Active Substance: OLODATEROL HYDROCHLORIDE\TIOTROPIUM BROMIDE MONOHYDRATE
     Indication: CHRONIC OBSTRUCTIVE PULMONARY DISEASE
     Route: 048
     Dates: start: 20151027
  10. NEXIUM [Concomitant]
     Active Substance: ESOMEPRAZOLE MAGNESIUM
     Indication: GASTROOESOPHAGEAL REFLUX DISEASE
     Dosage: DAILY DOSE: 1 X 1
     Route: 048

REACTIONS (2)
  - Diabetic ketoacidosis [Recovered/Resolved]
  - Chronic obstructive pulmonary disease [Recovered/Resolved]

NARRATIVE: CASE EVENT DATE: 20160922
